FAERS Safety Report 9650760 (Version 1)
Quarter: 2013Q4

REPORT INFORMATION
  Report Type: Report from Study
  Country: US (occurrence: US)
  Receive Date: 20131029
  Receipt Date: 20131029
  Transmission Date: 20140711
  Serious: Yes (Other)
  Sender: FDA-Public Use
  Company Number: US-BAYER-2013-128597

PATIENT
  Sex: Female

DRUGS (2)
  1. BETASERON [Suspect]
     Indication: PROGRESSIVE RELAPSING MULTIPLE SCLEROSIS
     Dosage: UNK
     Dates: start: 20050723, end: 20080306
  2. BETASERON [Suspect]
     Indication: PROGRESSIVE RELAPSING MULTIPLE SCLEROSIS
     Dosage: 8 MIU, QOD
     Route: 058
     Dates: start: 20121222

REACTIONS (1)
  - Renal impairment [Not Recovered/Not Resolved]
